FAERS Safety Report 19972516 (Version 1)
Quarter: 2021Q4

REPORT INFORMATION
  Report Type: Spontaneous
  Country: EG (occurrence: EG)
  Receive Date: 20211020
  Receipt Date: 20211020
  Transmission Date: 20220303
  Serious: Yes (Life-Threatening, Other)
  Sender: FDA-Public Use
  Company Number: EG-NOVARTISPH-NVSC2021EG237394

PATIENT
  Sex: Male

DRUGS (6)
  1. COSENTYX [Suspect]
     Active Substance: SECUKINUMAB
     Indication: Ankylosing spondylitis
     Dosage: 150 MG, (2 PENS FOR 1 MONTH, THEN 1 PEN MONTHLY)
     Route: 058
     Dates: start: 2017
  2. CATAFLAM [Suspect]
     Active Substance: DICLOFENAC POTASSIUM
     Indication: Ankylosing spondylitis
     Dosage: 50 MG (4 TABLETS DAILY)
     Route: 065
     Dates: start: 2011, end: 2017
  3. OLFEN [Concomitant]
     Indication: Ankylosing spondylitis
     Dosage: UNK (ONE IM AMPOULE DAILY)
     Route: 030
     Dates: start: 2012, end: 2017
  4. ALPHINTERN [Concomitant]
     Indication: Ankylosing spondylitis
     Dosage: 2 DF (2 TABLETS DAILY) (STARTED 2017 FOR 2 MONTHS AND THEN STOPPED)
     Route: 065
     Dates: start: 2017
  5. DICLOFENAC SODIUM [Concomitant]
     Active Substance: DICLOFENAC SODIUM
     Indication: Ankylosing spondylitis
     Dosage: 1 DF, QD (STARTED 2017 FOR 2 MONTHS THEN STOPPED)
     Route: 065
     Dates: start: 2017
  6. ARCOXIA [Concomitant]
     Active Substance: ETORICOXIB
     Indication: Ankylosing spondylitis
     Dosage: 90 MG (ONE TABLET WHEN NEEDED)
     Route: 065
     Dates: start: 2019

REACTIONS (12)
  - Pain [Recovering/Resolving]
  - Drug intolerance [Recovered/Resolved]
  - Mobility decreased [Recovered/Resolved]
  - Dyspnoea [Recovered/Resolved]
  - Hyperhidrosis [Recovered/Resolved]
  - Drug ineffective [Recovered/Resolved]
  - Condition aggravated [Not Recovered/Not Resolved]
  - Back pain [Recovering/Resolving]
  - Screaming [Not Recovered/Not Resolved]
  - Product use issue [Recovering/Resolving]
  - Product supply issue [Not Recovered/Not Resolved]
  - Therapeutic product effect decreased [Recovering/Resolving]

NARRATIVE: CASE EVENT DATE: 20160101
